FAERS Safety Report 19038979 (Version 3)
Quarter: 2021Q3

REPORT INFORMATION
  Report Type: Spontaneous
  Country: JP (occurrence: JP)
  Receive Date: 20210322
  Receipt Date: 20210705
  Transmission Date: 20211014
  Serious: Yes (Death, Hospitalization, Other)
  Sender: FDA-Public Use
  Company Number: JP-GLAXOSMITHKLINE-JP2021064233

PATIENT
  Age: 87 Year
  Sex: Male

DRUGS (16)
  1. PREDNISOLONE TABLETS [Concomitant]
     Active Substance: PREDNISOLONE
     Dosage: 10 MG, QD
  2. BISONO TAPE [Concomitant]
     Dosage: 2 MG, QD
     Route: 050
  3. SODIUM CHLORIDE. [Concomitant]
     Active Substance: SODIUM CHLORIDE
     Dosage: 2 G, BID
  4. DEXAMETHASONE. [Concomitant]
     Active Substance: DEXAMETHASONE
     Dosage: 2 ML, TID
  5. AMLODIPINE BESILATE TABLET [Concomitant]
     Active Substance: AMLODIPINE BESYLATE
     Dosage: 2.5 MG, QD
  6. CEPHARANTHINE [Concomitant]
     Active Substance: CEPHARANTHINE
     Dosage: 2 MG, TID
  7. MOHRUS TAPE L [Concomitant]
     Active Substance: KETOPROFEN
     Dosage: 80 MG, QD
     Route: 061
  8. CARBOCISTEINE TABLETS [Concomitant]
     Active Substance: CARBOCYSTEINE
     Dosage: 500 MG, TID
  9. NEORAL [Concomitant]
     Active Substance: CYCLOSPORINE
     Dosage: 150 MG, QD
     Route: 048
  10. MAGMITT TABLET [Concomitant]
     Dosage: AFTER BREAKFAST:660MG LUNCH:330MG DINNER:660MG, TID
  11. COLONEL [Concomitant]
     Active Substance: CALCIUM POLYCARBOPHIL
     Dosage: 0.6 G, TID
     Route: 048
  12. BROMHEXINE HYDROCHLORIDE [Concomitant]
     Active Substance: BROMHEXINE HYDROCHLORIDE
     Dosage: 4 MG, TID
  13. BONALON ORAL JELLY [Concomitant]
     Dosage: 35 MG, WE
     Route: 048
  14. SAMTIREL [Suspect]
     Active Substance: ATOVAQUONE
     Indication: ANTIFUNGAL PROPHYLAXIS
     Dosage: 2 DF, QD
     Route: 048
     Dates: start: 20201012
  15. TAMSULOSIN HYDROCHLORIDE OD [Concomitant]
     Active Substance: TAMSULOSIN HYDROCHLORIDE
     Dosage: 0.2 MG, QD
     Route: 048
  16. OMEPRAZOLE TABLET [Concomitant]
     Active Substance: OMEPRAZOLE
     Dosage: 10 MG, QD
     Route: 048

REACTIONS (3)
  - Pyrexia [Unknown]
  - Death [Fatal]
  - Pneumonia [Unknown]

NARRATIVE: CASE EVENT DATE: 20201224
